FAERS Safety Report 13876970 (Version 1)
Quarter: 2017Q3

REPORT INFORMATION
  Report Type: Report from Study
  Country: CN (occurrence: CN)
  Receive Date: 20170817
  Receipt Date: 20170817
  Transmission Date: 20171127
  Serious: Yes (Death)
  Sender: FDA-Public Use
  Company Number: CN-ACTELION-A-CH2017-157777

PATIENT
  Age: 45 Year
  Sex: Female

DRUGS (2)
  1. SILDENAFIL. [Concomitant]
     Active Substance: SILDENAFIL
     Indication: PRODUCT USED FOR UNKNOWN INDICATION
     Dosage: UNK
     Route: 048
     Dates: end: 20170529
  2. TRACLEER [Suspect]
     Active Substance: BOSENTAN
     Indication: THROMBOSIS
     Dosage: UNK
     Route: 048
     Dates: start: 201607, end: 20170529

REACTIONS (1)
  - Cardiac failure [Fatal]
